FAERS Safety Report 16092453 (Version 1)
Quarter: 2019Q1

REPORT INFORMATION
  Report Type: Spontaneous
  Country: BR (occurrence: BR)
  Receive Date: 20190319
  Receipt Date: 20190319
  Transmission Date: 20190418
  Serious: Yes (Other)
  Sender: FDA-Public Use
  Company Number: BR-009507513-1903BRA006233

PATIENT
  Age: 2 Month
  Sex: Male

DRUGS (2)
  1. NITES [Suspect]
     Active Substance: MOMETASONE FUROATE
     Indication: SNORING
  2. NITES [Suspect]
     Active Substance: MOMETASONE FUROATE
     Indication: NASAL CONGESTION
     Dosage: 1 SPRAY IN EACH NOSTRIL ,ONCE NIGHTLY FOR 60 DAYS
     Dates: start: 20190225, end: 20190226

REACTIONS (7)
  - Nasal obstruction [Not Recovered/Not Resolved]
  - Vomiting [Not Recovered/Not Resolved]
  - Product use in unapproved indication [Unknown]
  - Product prescribing error [Unknown]
  - Drug ineffective for unapproved indication [Not Recovered/Not Resolved]
  - Gastrooesophageal reflux disease [Unknown]
  - Product use issue [Unknown]

NARRATIVE: CASE EVENT DATE: 2019
